FAERS Safety Report 22335950 (Version 1)
Quarter: 2023Q2

REPORT INFORMATION
  Report Type: Spontaneous
  Country: US (occurrence: None)
  Receive Date: 20230518
  Receipt Date: 20230518
  Transmission Date: 20230721
  Serious: No
  Sender: FDA-Public Use
  Company Number: US-ROCHE-3150246

PATIENT
  Sex: Female
  Weight: 53.572 kg

DRUGS (11)
  1. ACTEMRA [Suspect]
     Active Substance: TOCILIZUMAB
     Indication: Juvenile idiopathic arthritis
     Dosage: STRENGTH: 162 MG/0.9 ML
     Route: 058
     Dates: start: 202205
  2. ACTEMRA [Suspect]
     Active Substance: TOCILIZUMAB
  3. ACTEMRA [Suspect]
     Active Substance: TOCILIZUMAB
     Route: 058
     Dates: start: 2021, end: 2022
  4. ACTEMRA [Suspect]
     Active Substance: TOCILIZUMAB
  5. FLONASE [Concomitant]
     Active Substance: FLUTICASONE PROPIONATE
     Indication: Allergy to animal
     Dosage: 1 SPRAY EACH NOSTRIL DAILY ;ONGOING: YES
     Route: 045
  6. FLONASE [Concomitant]
     Active Substance: FLUTICASONE PROPIONATE
     Indication: Allergy to animal
  7. FLONASE [Concomitant]
     Active Substance: FLUTICASONE PROPIONATE
     Indication: Mite allergy
  8. AZELASTINE [Concomitant]
     Active Substance: AZELASTINE
     Indication: Allergy to animal
     Dosage: 1 SPRAY EACH NOSTRIL .137 ML = 125 MG ;ONGOING: YES
     Route: 045
  9. AZELASTINE [Concomitant]
     Active Substance: AZELASTINE
     Indication: Allergy to animal
  10. AZELASTINE [Concomitant]
     Active Substance: AZELASTINE
     Indication: Mite allergy
  11. VITAMIN D [Concomitant]
     Active Substance: VITAMIN D NOS
     Indication: Vitamin D deficiency
     Dosage: 1 DROP = 2000 IU DAILY ;ONGOING: YES
     Route: 048

REACTIONS (14)
  - Ill-defined disorder [Not Recovered/Not Resolved]
  - Juvenile idiopathic arthritis [Not Recovered/Not Resolved]
  - Restless legs syndrome [Not Recovered/Not Resolved]
  - Fatigue [Unknown]
  - Mood altered [Unknown]
  - Iron overload [Not Recovered/Not Resolved]
  - Early satiety [Not Recovered/Not Resolved]
  - Product dose omission issue [Unknown]
  - Gastric disorder [Unknown]
  - Haemorrhage [Unknown]
  - Exposure via skin contact [Unknown]
  - Unevaluable event [Unknown]
  - Device leakage [Unknown]
  - Intentional product misuse [Unknown]

NARRATIVE: CASE EVENT DATE: 20220101
